FAERS Safety Report 24193093 (Version 1)
Quarter: 2024Q3

REPORT INFORMATION
  Report Type: Spontaneous
  Country: IN (occurrence: IN)
  Receive Date: 20240809
  Receipt Date: 20240809
  Transmission Date: 20241016
  Serious: Yes (Other)
  Sender: ENDO
  Company Number: IN-ENDO USA, INC.-2024-003098

PATIENT
  Age: 38 Year
  Sex: Female

DRUGS (1)
  1. APLISOL [Suspect]
     Active Substance: TUBERCULIN PURIFIED PROTEIN DERIVATIVE
     Indication: Tuberculin test
     Dosage: UNK UNKNOWN, UNKNOWN
     Route: 051
     Dates: start: 2019, end: 2019

REACTIONS (4)
  - Serous retinal detachment [Recovering/Resolving]
  - Panophthalmitis [Recovering/Resolving]
  - Hypersensitivity [Unknown]
  - Injection site reaction [Unknown]

NARRATIVE: CASE EVENT DATE: 20190101
